FAERS Safety Report 21622714 (Version 1)
Quarter: 2022Q4

REPORT INFORMATION
  Report Type: Spontaneous
  Country: KR (occurrence: KR)
  Receive Date: 20221121
  Receipt Date: 20221121
  Transmission Date: 20230113
  Serious: Yes (Other)
  Sender: FDA-Public Use
  Company Number: KR-MYLANLABS-2022M1126460

PATIENT
  Age: 54 Year
  Sex: Male

DRUGS (7)
  1. LYRICA [Suspect]
     Active Substance: PREGABALIN
     Indication: Metastases to retroperitoneum
     Dosage: 150 MILLIGRAM, QD
     Route: 065
     Dates: start: 20190320, end: 20190320
  2. LYRICA [Suspect]
     Active Substance: PREGABALIN
     Indication: Metastases to peritoneum
     Dosage: 75 MILLIGRAM, QD
     Route: 065
     Dates: start: 20190320, end: 20190320
  3. FLUOROURACIL [Suspect]
     Active Substance: FLUOROURACIL
     Dosage: 2 GRAM, QD
     Route: 065
     Dates: start: 20190320, end: 20190320
  4. OXALIPLATIN [Suspect]
     Active Substance: OXALIPLATIN
     Indication: Metastases to retroperitoneum
     Dosage: 27 MILLIGRAM, QD
     Route: 065
     Dates: start: 20190320, end: 20190320
  5. OXALIPLATIN [Suspect]
     Active Substance: OXALIPLATIN
     Indication: Metastases to peritoneum
  6. FUROSEMIDE [Suspect]
     Active Substance: FUROSEMIDE
     Indication: Metastases to retroperitoneum
     Dosage: 10 MILLIGRAM, QD
     Route: 065
     Dates: start: 20190320, end: 20190320
  7. FUROSEMIDE [Suspect]
     Active Substance: FUROSEMIDE
     Indication: Metastases to peritoneum

REACTIONS (3)
  - Tongue paralysis [Recovered/Resolved]
  - Dizziness [Recovered/Resolved]
  - Off label use [Unknown]

NARRATIVE: CASE EVENT DATE: 20190320
